FAERS Safety Report 8336505-0 (Version None)
Quarter: 2012Q2

REPORT INFORMATION
  Report Type: 
  Country: None (occurrence: None)
  Receive Date: 20120504
  Receipt Date: 20120425
  Transmission Date: 20120825
  Serious: Yes (Other)
  Sender: FDA-Public Use
  Company Number: US-VERTEX PHARMACEUTICALS INC.-AE-2012-006014

PATIENT
  Sex: Male
  Weight: 77.18 kg

DRUGS (5)
  1. INCIVEK [Suspect]
     Indication: HEPATITIS C
     Route: 048
     Dates: start: 20120112, end: 20120405
  2. RIBAVIRIN [Concomitant]
     Indication: HEPATITIS C
     Route: 048
     Dates: start: 20120112
  3. PEGASYS [Concomitant]
     Indication: HEPATITIS C
     Route: 058
     Dates: start: 20120112
  4. AMITRIPTYLINE HCL [Concomitant]
  5. CALCIUM CARBONATE [Concomitant]

REACTIONS (9)
  - OEDEMA [None]
  - PYREXIA [None]
  - FEELING COLD [None]
  - LYMPHADENOPATHY [None]
  - SKIN EXFOLIATION [None]
  - RASH PRURITIC [None]
  - MOUTH ULCERATION [None]
  - RASH PUSTULAR [None]
  - BLISTER [None]
